FAERS Safety Report 4709311-3 (Version None)
Quarter: 2005Q3

REPORT INFORMATION
  Report Type: 
  Country: None (occurrence: None)
  Receive Date: 20050706
  Receipt Date: 20050623
  Transmission Date: 20060218
  Serious: Yes (Other)
  Sender: FDA-Public Use
  Company Number: GB-YAMANOUCHI-YEHQ20050689

PATIENT
  Age: 77 Year
  Sex: Female

DRUGS (6)
  1. SOLIFENACIN [Suspect]
     Indication: HYPERTONIC BLADDER
     Dates: start: 20050401, end: 20050505
  2. SOLIFENACIN [Suspect]
     Indication: MICTURITION URGENCY
     Dates: start: 20050401, end: 20050505
  3. METOPROLOL [Concomitant]
  4. FELODIPINE [Concomitant]
  5. NORFLOXACIN [Concomitant]
  6. ALENDRONATE [Concomitant]

REACTIONS (2)
  - PRURITUS [None]
  - VASCULITIC RASH [None]
